FAERS Safety Report 8825188 (Version 1)
Quarter: 2012Q4

REPORT INFORMATION
  Report Type: 
  Country: IE (occurrence: IE)
  Receive Date: 20121004
  Receipt Date: 20121004
  Transmission Date: 20130627
  Serious: Yes (Other)
  Sender: FDA-Public Use
  Company Number: IE-GLAXOSMITHKLINE-B0835088A

PATIENT
  Sex: Male

DRUGS (7)
  1. VOTRIENT [Suspect]
     Indication: RENAL CELL CARCINOMA
     Dosage: 800MG per day
     Route: 048
  2. MAXOLON [Concomitant]
     Dosage: 10MG Three times per day
  3. EMCOR [Concomitant]
  4. FUROSEMIDE [Concomitant]
  5. RAMIPRIL [Concomitant]
  6. ALDACTONE [Concomitant]
  7. ASPIRIN [Concomitant]

REACTIONS (2)
  - Liver function test abnormal [Not Recovered/Not Resolved]
  - Abdominal pain [Unknown]
